FAERS Safety Report 22091773 (Version 1)
Quarter: 2023Q1

REPORT INFORMATION
  Report Type: Spontaneous
  Country: JP (occurrence: JP)
  Receive Date: 20230314
  Receipt Date: 20230314
  Transmission Date: 20230418
  Serious: Yes (Hospitalization, Other)
  Sender: FDA-Public Use
  Company Number: JP-JNJFOC-20211136166

PATIENT
  Age: 11 Year
  Sex: Male
  Weight: 34.4 kg

DRUGS (17)
  1. IMBRUVICA [Suspect]
     Active Substance: IBRUTINIB
     Indication: Chronic graft versus host disease
     Dosage: GRADUALLY INCREASED
     Route: 048
     Dates: start: 2021
  2. IMBRUVICA [Suspect]
     Active Substance: IBRUTINIB
     Indication: Chronic graft versus host disease
     Route: 048
     Dates: start: 20211111, end: 20211111
  3. IMBRUVICA [Suspect]
     Active Substance: IBRUTINIB
     Indication: Chronic graft versus host disease
     Dosage: GRADUALLY INCREASED
     Route: 048
     Dates: start: 20211221
  4. IMBRUVICA [Suspect]
     Active Substance: IBRUTINIB
     Indication: Chronic graft versus host disease
     Route: 048
  5. SULFAMETHOXAZOLE\TRIMETHOPRIM [Concomitant]
     Active Substance: SULFAMETHOXAZOLE\TRIMETHOPRIM
     Indication: Prophylaxis
     Dosage: AFTER BREAKFAST AND DINNER, WEDNESDAY/THURSDAY/FRIDAY
     Route: 048
  6. FAMOTIDINE [Concomitant]
     Active Substance: FAMOTIDINE
     Indication: Gastritis
     Dosage: AFTER BREAKFAST AND DINNER
     Route: 048
     Dates: start: 20210625
  7. TACROLIMUS [Suspect]
     Active Substance: TACROLIMUS
     Indication: Chronic graft versus host disease
     Route: 041
     Dates: start: 20211111, end: 20211111
  8. TACROLIMUS [Suspect]
     Active Substance: TACROLIMUS
     Indication: Chronic graft versus host disease
     Route: 041
     Dates: start: 20211113, end: 20211126
  9. TACROLIMUS [Suspect]
     Active Substance: TACROLIMUS
     Indication: Chronic graft versus host disease
     Route: 041
     Dates: start: 20211018, end: 20211110
  10. FLUCONAZOLE [Concomitant]
     Active Substance: FLUCONAZOLE
     Indication: Prophylaxis
     Dosage: AFTER BREAKFAST
     Route: 048
  11. CELLCEPT [Concomitant]
     Active Substance: MYCOPHENOLATE MOFETIL
     Indication: Chronic graft versus host disease
     Dosage: AFTER BREAKFAST AND DINNER
     Route: 048
     Dates: start: 20210319
  12. PREDNISOLONE [Suspect]
     Active Substance: PREDNISOLONE
     Indication: Chronic graft versus host disease
     Dosage: DOSE UNKNOWN
     Route: 048
     Dates: start: 20211129
  13. PREDNISOLONE [Suspect]
     Active Substance: PREDNISOLONE
     Indication: Chronic graft versus host disease
     Dosage: DOSE UNKNOWN
     Route: 048
     Dates: start: 20210625, end: 20211019
  14. PREDNISOLONE [Suspect]
     Active Substance: PREDNISOLONE
     Indication: Chronic graft versus host disease
     Route: 042
     Dates: start: 20211020, end: 20211128
  15. PREDNISOLONE [Suspect]
     Active Substance: PREDNISOLONE
     Indication: Chronic graft versus host disease
     Dosage: DOSE UNKNOWN
     Route: 042
     Dates: start: 2020
  16. PROGRAF [Suspect]
     Active Substance: TACROLIMUS
     Indication: Chronic graft versus host disease
     Dosage: DOSE UNKNOWN
     Route: 048
     Dates: start: 2020, end: 20211017
  17. PROGRAF [Suspect]
     Active Substance: TACROLIMUS
     Indication: Chronic graft versus host disease
     Dosage: DOSE UNKNOWN
     Route: 048
     Dates: start: 20211126

REACTIONS (3)
  - Posterior reversible encephalopathy syndrome [Recovered/Resolved]
  - Off label use [Unknown]
  - Product use issue [Unknown]

NARRATIVE: CASE EVENT DATE: 20211111
